FAERS Safety Report 15180573 (Version 3)
Quarter: 2018Q3

REPORT INFORMATION
  Report Type: Spontaneous
  Country: BR (occurrence: BR)
  Receive Date: 20180723
  Receipt Date: 20180820
  Transmission Date: 20181010
  Serious: Yes (Other)
  Sender: FDA-Public Use
  Company Number: BR-PFIZER INC-2018292722

PATIENT
  Age: 71 Year
  Sex: Female

DRUGS (2)
  1. SUTENT [Suspect]
     Active Substance: SUNITINIB MALATE
     Dosage: 37.5 MG, DAILY (CYCLE 28X14 DAYS)
     Dates: start: 2017
  2. SUTENT [Suspect]
     Active Substance: SUNITINIB MALATE
     Indication: METASTASES TO LIVER
     Dosage: 50 MG, EVERY DAY AFTER LUNCH (CYCLE 28X14 DAYS)
     Dates: start: 20161025, end: 2017

REACTIONS (12)
  - Haemorrhage [Recovered/Resolved]
  - Blood triglycerides increased [Recovered/Resolved]
  - Thyroid disorder [Recovered/Resolved]
  - Limb injury [Recovered/Resolved]
  - Hallucination, visual [Recovered/Resolved]
  - Blood pressure increased [Recovered/Resolved]
  - Feeling abnormal [Recovered/Resolved]
  - Mouth injury [Recovered/Resolved]
  - Yellow skin [Recovered/Resolved]
  - Decreased appetite [Recovered/Resolved]
  - Hair colour changes [Recovered/Resolved]
  - Hypotension [Recovered/Resolved]

NARRATIVE: CASE EVENT DATE: 2016
